FAERS Safety Report 6652877-7 (Version None)
Quarter: 2010Q1

REPORT INFORMATION
  Report Type: 
  Country: None (occurrence: None)
  Receive Date: 20100326
  Receipt Date: 20100318
  Transmission Date: 20100710
  Serious: Yes (Other)
  Sender: FDA-Public Use
  Company Number: JP-ASTRAZENECA-2010SE09600

PATIENT
  Age: 73 Year
  Sex: Male

DRUGS (10)
  1. IRESSA [Suspect]
     Indication: LUNG CANCER METASTATIC
     Route: 048
     Dates: start: 20091106
  2. FAMOTIDINE [Suspect]
     Indication: GASTRIC ULCER
     Route: 048
     Dates: start: 20090311
  3. MICARDIS [Concomitant]
     Indication: HYPERTENSION
     Route: 048
     Dates: start: 20090310
  4. FLUITRAN [Concomitant]
     Indication: HYPERTENSION
     Route: 048
     Dates: start: 20090310
  5. GLUFAST [Concomitant]
     Indication: DIABETES MELLITUS
     Route: 048
     Dates: start: 20090421
  6. HEAVY MAGNESIUM OXIDE [Concomitant]
     Indication: CONSTIPATION
     Route: 048
     Dates: start: 20090422
  7. HOKUNALIN TAPE [Concomitant]
     Indication: EMPHYSEMA
     Route: 062
     Dates: start: 20090425
  8. MUCOSOLVAN [Concomitant]
     Indication: EMPHYSEMA
     Route: 048
     Dates: start: 20090715
  9. ADONA [Concomitant]
     Indication: HAEMOPTYSIS
     Route: 048
     Dates: start: 20090826
  10. RISPERDAL [Concomitant]
     Indication: RESTLESSNESS
     Route: 048
     Dates: start: 20091201

REACTIONS (2)
  - PLATELET COUNT DECREASED [None]
  - WHITE BLOOD CELL COUNT DECREASED [None]
